FAERS Safety Report 7471925-8 (Version None)
Quarter: 2011Q2

REPORT INFORMATION
  Report Type: 
  Country: None (occurrence: None)
  Receive Date: 20110511
  Receipt Date: 20100723
  Transmission Date: 20111010
  Serious: No
  Sender: FDA-Public Use
  Company Number: A0872122A

PATIENT
  Age: 51 Year
  Sex: Female

DRUGS (3)
  1. XELODA [Concomitant]
  2. TYKERB [Suspect]
     Indication: BREAST CANCER
     Dosage: 250MG FIVE TIMES PER DAY
     Route: 048
     Dates: start: 20100603
  3. METOPROLOL SUCCINATE [Concomitant]

REACTIONS (2)
  - PRURITUS [None]
  - NAUSEA [None]
